FAERS Safety Report 7963409-5 (Version None)
Quarter: 2011Q4

REPORT INFORMATION
  Report Type: 
  Country: None (occurrence: None)
  Receive Date: 20111122
  Receipt Date: 20110815
  Transmission Date: 20120403
  Serious: No
  Sender: FDA-Public Use
  Company Number: PHHY2011US66343

PATIENT
  Age: 55 Year
  Sex: Female

DRUGS (6)
  1. GILENYA [Suspect]
     Indication: MULTIPLE SCLEROSIS
     Dosage: 0.5 MG, QD, ORAL
     Route: 048
     Dates: start: 20110518
  2. LOTENSIN [Concomitant]
  3. DETROL [Concomitant]
  4. MAXZIDE [Concomitant]
  5. FAMPRIDINE (FAMPRIDINE) [Concomitant]
  6. VITAMIN B12 [Concomitant]

REACTIONS (1)
  - FATIGUE [None]
